FAERS Safety Report 19440322 (Version 1)
Quarter: 2021Q2

REPORT INFORMATION
  Report Type: Spontaneous
  Country: US (occurrence: US)
  Receive Date: 20210621
  Receipt Date: 20210621
  Transmission Date: 20210717
  Serious: Yes (Death, Hospitalization, Other)
  Sender: FDA-Public Use
  Company Number: US-IPCA LABORATORIES LIMITED-IPC-2021-US-001182

PATIENT

DRUGS (1)
  1. WARFARIN [Suspect]
     Active Substance: WARFARIN
     Indication: ATRIAL FLUTTER
     Dosage: UNK
     Route: 065

REACTIONS (9)
  - Haemothorax [Fatal]
  - Loss of consciousness [Fatal]
  - Anticoagulation drug level above therapeutic [Fatal]
  - Coma scale abnormal [Fatal]
  - Back pain [Fatal]
  - Haematuria [Fatal]
  - Haematoma [Fatal]
  - Intra-abdominal vascular injury [Fatal]
  - Fall [Fatal]
